FAERS Safety Report 6644652-4 (Version None)
Quarter: 2010Q1

REPORT INFORMATION
  Report Type: 
  Country: None (occurrence: None)
  Receive Date: 20100319
  Receipt Date: 20100319
  Transmission Date: 20100710
  Serious: Yes (Hospitalization)
  Sender: FDA-Public Use
  Company Number: None

PATIENT
  Age: 70 Year
  Sex: Male
  Weight: 119 kg

DRUGS (1)
  1. VALSARTAN [Suspect]
     Dosage: 80 MG EVERY DAY PO
     Route: 048
     Dates: start: 20090803, end: 20090807

REACTIONS (1)
  - RENAL FAILURE ACUTE [None]
